FAERS Safety Report 8521077-8 (Version None)
Quarter: 2012Q3

REPORT INFORMATION
  Report Type: 
  Country: None (occurrence: None)
  Receive Date: 20120712
  Receipt Date: 20120712
  Transmission Date: 20120928
  Serious: Yes (Other)
  Sender: FDA-Public Use
  Company Number: None

PATIENT
  Age: 50 Year
  Sex: Male
  Weight: 99.7913 kg

DRUGS (1)
  1. CRESTOR [Suspect]
     Indication: HYPERCHOLESTEROLAEMIA
     Dates: start: 20090201, end: 20120702

REACTIONS (5)
  - IRRITABILITY [None]
  - IMPAIRED WORK ABILITY [None]
  - AMNESIA [None]
  - ACTIVITIES OF DAILY LIVING IMPAIRED [None]
  - MOOD ALTERED [None]
